FAERS Safety Report 16169749 (Version 1)
Quarter: 2019Q2

REPORT INFORMATION
  Report Type: Spontaneous
  Country: US (occurrence: US)
  Receive Date: 20190407
  Receipt Date: 20190407
  Transmission Date: 20190711
  Serious: Yes (Disabling)
  Sender: FDA-Public Use
  Company Number: None

PATIENT
  Age: 61 Year
  Sex: Female
  Weight: 65.25 kg

DRUGS (16)
  1. B6/B12 [Concomitant]
  2. MAGNESIUM [Concomitant]
     Active Substance: MAGNESIUM
  3. NAILS SUPPLEENT [Concomitant]
  4. CALCIUM [Concomitant]
     Active Substance: CALCIUM
  5. VITAMIN B12 [Concomitant]
     Active Substance: CYANOCOBALAMIN
  6. CYNATINE (HNS SOLUBILIZED KERATIN) [Concomitant]
  7. TIME-RELEASE RED YEAST RICE [Concomitant]
  8. LORAZEPAM. [Suspect]
     Active Substance: LORAZEPAM
     Indication: PAIN MANAGEMENT
     Dosage: ?          QUANTITY:1 TABLET(S);?
     Route: 048
     Dates: start: 20010801, end: 20190216
  9. L-GLUTAMINE [Concomitant]
  10. TAURINE [Concomitant]
     Active Substance: TAURINE
  11. ZINC. [Concomitant]
     Active Substance: ZINC
  12. NIACIN/BIOTIC/SILICON/VERISOL (COLLAGEN PEPTIDES) [Concomitant]
  13. OMEGA-3S [Concomitant]
  14. MULTI-VITAMIN, MINERAL [Concomitant]
  15. VITAMIN B COMPLEX [Concomitant]
     Active Substance: CYANOCOBALAMIN\DEXPANTHENOL\NIACINAMIDE\PYRIDOXINE HYDROCHLORIDE\RIBOFLAVIN 5^-PHOSPHATE SODIUM\THIAMINE HYDROCHLORIDE\VITAMIN B COMPLEX
  16. VITAMIN C [Concomitant]
     Active Substance: ASCORBIC ACID

REACTIONS (5)
  - Depression [None]
  - Drug dependence [None]
  - Neuropathy peripheral [None]
  - Clostridium difficile colitis [None]
  - Agoraphobia [None]

NARRATIVE: CASE EVENT DATE: 20180501
